FAERS Safety Report 8474563-3 (Version None)
Quarter: 2012Q2

REPORT INFORMATION
  Report Type: 
  Country: None (occurrence: None)
  Receive Date: 20120628
  Receipt Date: 20120619
  Transmission Date: 20120825
  Serious: Yes (Hospitalization)
  Sender: FDA-Public Use
  Company Number: US-BAYER-2012-062639

PATIENT
  Age: 39 Year
  Sex: Female
  Weight: 79.365 kg

DRUGS (30)
  1. PERCOCET [Concomitant]
     Dosage: 1 TO 2 TABLETS Q6 HOURS PRN
     Route: 048
     Dates: start: 20090409, end: 20101209
  2. NAPROXEN [Concomitant]
     Dosage: 500 MG, Q 12 HOURS
     Route: 048
     Dates: start: 20100406, end: 20101209
  3. CYCLOBENZAPRINE [Concomitant]
     Dosage: 10 MG, 1 TO 2 TABLETS QHS
     Route: 048
     Dates: start: 20050930, end: 20111226
  4. MORPHINE [Concomitant]
     Indication: PAIN
  5. INSULIN [Concomitant]
     Indication: DIABETES MELLITUS
  6. TOPROL-XL [Concomitant]
  7. PROTONIX [Concomitant]
  8. HYDROMORPHONE HCL [Concomitant]
     Dosage: 4 MG, Q6 HOUR PRN
     Route: 048
     Dates: start: 20101102, end: 20110131
  9. BUPROPION HCL [Concomitant]
     Dosage: 150 MG, QD
     Route: 048
     Dates: start: 20080807, end: 20111018
  10. NORETHINDRONE [Concomitant]
  11. FUROSEMIDE [Concomitant]
  12. NOVOLOG [Concomitant]
  13. MILK OF MAGNESIA TAB [Concomitant]
  14. HYDROCHLOROTHIAZIDE [Concomitant]
     Dosage: 25 MG, QD
     Route: 048
     Dates: start: 20070920, end: 20101209
  15. PERCOCET [Concomitant]
  16. FLUCONAZOLE [Concomitant]
     Dosage: 100 MG, QD
     Dates: start: 20101115, end: 20101209
  17. MIRALAX [Concomitant]
     Indication: CONSTIPATION
  18. MICATIN [Concomitant]
  19. COLACE [Concomitant]
  20. DROSPIRENONE AND ETHINYL ESTRADIOL [Suspect]
  21. CLONAZEPAM [Concomitant]
     Dosage: 0.5 MG, BID
     Route: 048
     Dates: start: 20080701, end: 20111115
  22. PROVERA [Concomitant]
  23. LANTUS [Concomitant]
  24. FLEETS [Concomitant]
     Indication: CONSTIPATION
  25. CELEXA [Concomitant]
  26. IBUPROFEN [Concomitant]
     Dosage: 600 MG, PRN
     Route: 048
     Dates: start: 20100218, end: 20101027
  27. CITALOPRAM HYDROBROMIDE [Concomitant]
     Dosage: 20 MG, DAILY
     Route: 048
     Dates: start: 20100112, end: 20111115
  28. METOPROLOL TARTRATE [Concomitant]
     Dosage: 50 MG, DAILY
     Route: 048
     Dates: start: 20070813, end: 20111227
  29. ROXICET [Concomitant]
  30. KLONOPIN [Concomitant]

REACTIONS (2)
  - DEEP VEIN THROMBOSIS [None]
  - PULMONARY EMBOLISM [None]
